FAERS Safety Report 16242806 (Version 1)
Quarter: 2019Q2

REPORT INFORMATION
  Report Type: Spontaneous
  Country: US (occurrence: US)
  Receive Date: 20190322
  Receipt Date: 20190322
  Transmission Date: 20190711
  Serious: Yes (Hospitalization)
  Sender: FDA-Public Use
  Company Number: None

PATIENT
  Sex: Male
  Weight: 106.14 kg

DRUGS (2)
  1. OPEN BIOME FECAL PRODUCT 250ML [Suspect]
     Active Substance: FECAL MICROBIOTA
     Indication: CLOSTRIDIUM DIFFICILE INFECTION
     Dosage: ?          OTHER ROUTE:COLONOSCOPY INTO ILEUM+POUCH?
     Dates: start: 20190121
  2. VANCOMYCIN [Concomitant]
     Active Substance: VANCOMYCIN
     Dates: end: 20190121

REACTIONS (5)
  - Pain [None]
  - Campylobacter test positive [None]
  - Enteritis [None]
  - Mental status changes [None]
  - Diarrhoea [None]

NARRATIVE: CASE EVENT DATE: 20190124
